FAERS Safety Report 5606779-5 (Version None)
Quarter: 2008Q1

REPORT INFORMATION
  Report Type: 
  Country: None (occurrence: None)
  Receive Date: 20080111
  Receipt Date: 20070430
  Transmission Date: 20080703
  Serious: Yes (Hospitalization, Other)
  Sender: FDA-Public Use
  Company Number: HQWYE424826JUL04

PATIENT
  Age: 49 Year
  Sex: Female
  Weight: 80.81 kg

DRUGS (3)
  1. PREMPRO [Suspect]
  2. PREMARIN [Suspect]
  3. PREMPHASE 14/14 [Suspect]

REACTIONS (1)
  - PULMONARY EMBOLISM [None]
